FAERS Safety Report 9907564 (Version 1)
Quarter: 2014Q1

REPORT INFORMATION
  Report Type: Spontaneous
  Country: US (occurrence: US)
  Receive Date: 20140218
  Receipt Date: 20140218
  Transmission Date: 20141002
  Serious: Yes (Death)
  Sender: FDA-Public Use
  Company Number: US-ROCHE-1352127

PATIENT
  Age: 69 Year
  Sex: Male

DRUGS (11)
  1. XELODA [Suspect]
     Indication: GASTRIC CANCER
     Dosage: 7 DAYS ON 7 DAYS OFF
     Route: 048
     Dates: start: 20140129
  2. METFORMIN [Concomitant]
     Route: 065
  3. CLONIDINE [Concomitant]
  4. CYPROHEPTADINE [Concomitant]
  5. GABAPENTIN [Concomitant]
  6. NORCO [Concomitant]
  7. OMEPRAZOLE [Concomitant]
  8. RANITIDINE [Concomitant]
  9. ZOFRAN [Concomitant]
  10. COUMADIN [Concomitant]
  11. DOCUSATE [Concomitant]

REACTIONS (1)
  - Death [Fatal]
